FAERS Safety Report 13162986 (Version 1)
Quarter: 2017Q1

REPORT INFORMATION
  Report Type: Spontaneous
  Country: US (occurrence: US)
  Receive Date: 20170130
  Receipt Date: 20170130
  Transmission Date: 20170428
  Serious: Yes (Disabling)
  Sender: FDA-Public Use
  Company Number: None

PATIENT
  Age: 55 Year
  Sex: Female
  Weight: 68.04 kg

DRUGS (5)
  1. FLAXSEED [Concomitant]
     Active Substance: FLAX SEED
  2. FLUTICASONE NOSE SPRAY [Concomitant]
  3. VITAMIN D + LIQUID CALCIUM [Concomitant]
  4. TAMOXIFEN [Suspect]
     Active Substance: TAMOXIFEN
  5. RAINBOW LIGHT FOOD BASED MULTIVITAMIN [Concomitant]

REACTIONS (4)
  - Burning sensation [None]
  - Feeling cold [None]
  - Paraesthesia [None]
  - Pain [None]

NARRATIVE: CASE EVENT DATE: 20170110
